FAERS Safety Report 8011621-1 (Version None)
Quarter: 2011Q4

REPORT INFORMATION
  Report Type: 
  Country: None (occurrence: None)
  Receive Date: 20111228
  Receipt Date: 20110805
  Transmission Date: 20120403
  Serious: Yes (Other)
  Sender: FDA-Public Use
  Company Number: AR-GLAXOSMITHKLINE-A0959023A

PATIENT
  Age: 75 Year
  Sex: Female
  Weight: 59 kg

DRUGS (6)
  1. CINNARIZINE [Concomitant]
     Route: 048
  2. UNSPECIFIED MEDICATION [Concomitant]
     Indication: STENT PLACEMENT
  3. NICORETTE [Suspect]
     Route: 002
     Dates: start: 20050101
  4. NICORETTE [Suspect]
     Route: 002
     Dates: start: 20050101
  5. CHOLESTEROL REDUCING AGENT [Concomitant]
     Indication: BLOOD CHOLESTEROL INCREASED
     Dosage: 40MG PER DAY
  6. ASPIRIN [Concomitant]

REACTIONS (3)
  - INTENTIONAL DRUG MISUSE [None]
  - MYOCARDIAL INFARCTION [None]
  - NICOTINE DEPENDENCE [None]
